FAERS Safety Report 8482954-X (Version None)
Quarter: 2012Q3

REPORT INFORMATION
  Report Type: 
  Country: None (occurrence: None)
  Receive Date: 20120702
  Receipt Date: 20120618
  Transmission Date: 20120928
  Serious: No
  Sender: FDA-Public Use
  Company Number: US-ASTRAZENECA-2012SE41039

PATIENT
  Age: 51 Year
  Sex: Female

DRUGS (6)
  1. ASPIRIN [Concomitant]
  2. NASONEX [Concomitant]
  3. CRESTOR [Suspect]
     Route: 048
     Dates: start: 20110506
  4. AMOXICILLIN [Concomitant]
  5. CORTISPORIN [Concomitant]
  6. VITAMIN E [Concomitant]

REACTIONS (1)
  - ANXIETY [None]
